FAERS Safety Report 7647328-X (Version None)
Quarter: 2011Q3

REPORT INFORMATION
  Report Type: 
  Country: None (occurrence: None)
  Receive Date: 20110801
  Receipt Date: 20110616
  Transmission Date: 20111222
  Serious: Yes (Hospitalization)
  Sender: FDA-Public Use
  Company Number: US-AMGEN-USASP2011030878

PATIENT
  Age: 51 Year
  Sex: Female

DRUGS (1)
  1. ENBREL [Suspect]
     Indication: PSORIASIS
     Dosage: UNK
     Dates: start: 20030127, end: 20080801

REACTIONS (4)
  - PSORIASIS [None]
  - STAPHYLOCOCCAL INFECTION [None]
  - ARTHRALGIA [None]
  - HIP FRACTURE [None]
